FAERS Safety Report 7044841-3 (Version None)
Quarter: 2010Q4

REPORT INFORMATION
  Report Type: 
  Country: None (occurrence: None)
  Receive Date: 20101014
  Receipt Date: 20101004
  Transmission Date: 20110411
  Serious: Yes (Hospitalization)
  Sender: FDA-Public Use
  Company Number: PHHY2010FR66838

PATIENT
  Sex: Female

DRUGS (4)
  1. EXELON [Suspect]
     Indication: DEMENTIA ALZHEIMER'S TYPE
     Dosage: 9.5 MG
     Route: 062
     Dates: start: 20100910
  2. EXELON [Suspect]
     Dosage: 9.5 MG FIVE PATCHES
     Route: 062
     Dates: start: 20100914
  3. ESIDRIX [Concomitant]
     Indication: HYPERTENSION
  4. RAMIPRIL [Concomitant]
     Indication: HYPERTENSION

REACTIONS (10)
  - ABDOMINAL PAIN [None]
  - AGITATION [None]
  - DISORIENTATION [None]
  - HALLUCINATION [None]
  - HYPERTENSION [None]
  - INAPPROPRIATE SCHEDULE OF DRUG ADMINISTRATION [None]
  - LEUKOCYTOSIS [None]
  - SINUS TACHYCARDIA [None]
  - VOMITING [None]
  - WRONG TECHNIQUE IN DRUG USAGE PROCESS [None]
